FAERS Safety Report 8310304-8 (Version None)
Quarter: 2012Q2

REPORT INFORMATION
  Report Type: 
  Country: None (occurrence: None)
  Receive Date: 20120425
  Receipt Date: 20120414
  Transmission Date: 20120825
  Serious: Yes (Hospitalization, Other)
  Sender: FDA-Public Use
  Company Number: PHHY2012BR032498

PATIENT
  Sex: Male

DRUGS (6)
  1. ISOSORBIDE MONONITRATE [Concomitant]
     Indication: INFARCTION
     Dosage: 20 MG, QD
     Route: 048
  2. RISPERIDONE [Concomitant]
     Dosage: 1 MG, BID
     Route: 048
  3. EXELON [Suspect]
     Indication: DEMENTIA ALZHEIMER'S TYPE
     Dosage: 3 MG, BID, ONE CAP AT MORNING AND ONE CAP AT NIGHT
     Route: 048
     Dates: start: 20040101
  4. TRILEPTAL [Suspect]
     Indication: DEMENTIA ALZHEIMER'S TYPE
     Dosage: 300 MG, BID
     Route: 048
     Dates: start: 20040101
  5. NEULEPTIL [Concomitant]
     Indication: SLEEP DISORDER
     Dosage: 30 DRP, QHS
     Route: 048
  6. OXCARBAZEPINE [Suspect]
     Indication: DEMENTIA ALZHEIMER'S TYPE
     Dosage: 300 MG, BID
     Route: 048

REACTIONS (3)
  - WRONG TECHNIQUE IN DRUG USAGE PROCESS [None]
  - FALL [None]
  - FEMUR FRACTURE [None]
